FAERS Safety Report 7320676-9 (Version None)
Quarter: 2011Q1

REPORT INFORMATION
  Report Type: 
  Country: None (occurrence: None)
  Receive Date: 20110228
  Receipt Date: 20110215
  Transmission Date: 20110831
  Serious: Yes (Hospitalization, Other)
  Sender: FDA-Public Use
  Company Number: US-ROCHE-734443

PATIENT
  Sex: Female
  Weight: 70.3 kg

DRUGS (1)
  1. ACCUTANE [Suspect]
     Indication: ACNE
     Route: 065
     Dates: start: 19831001

REACTIONS (4)
  - CROHN'S DISEASE [None]
  - GASTROINTESTINAL DISORDER [None]
  - DEPRESSION [None]
  - SMALL INTESTINAL OBSTRUCTION [None]
